FAERS Safety Report 7207638-7 (Version None)
Quarter: 2011Q1

REPORT INFORMATION
  Report Type: 
  Country: None (occurrence: None)
  Receive Date: 20110103
  Receipt Date: 20101228
  Transmission Date: 20110831
  Serious: Yes (Other)
  Sender: FDA-Public Use
  Company Number: ES-PFIZER INC-2010150490

PATIENT
  Age: 55 Year
  Sex: Male
  Weight: 85.7 kg

DRUGS (8)
  1. PREDNISONE [Concomitant]
     Dosage: 15 MG, UNK
     Dates: start: 20101030, end: 20101104
  2. SIROLIMUS [Suspect]
     Dosage: 7 MG, 1X/DAY
     Route: 048
     Dates: start: 20101105, end: 20101101
  3. SIROLIMUS [Suspect]
     Dosage: 2 MG
     Route: 048
     Dates: start: 20101123
  4. MYCOPHENOLIC ACID [Concomitant]
     Dosage: 360 MG, UNK
     Dates: start: 20101025
  5. PREDNISONE [Concomitant]
     Indication: IMMUNOSUPPRESSANT DRUG THERAPY
     Dosage: 10 MG, UNK
     Dates: start: 20101019, end: 20101029
  6. SIROLIMUS [Suspect]
     Indication: IMMUNOSUPPRESSANT DRUG THERAPY
     Dosage: 2 MG EVERY 24 HOURS ALTERNATING WITH 3 MG TWO DAYS A WEEK
     Route: 048
     Dates: start: 20100907, end: 20100101
  7. PROGRAF [Concomitant]
     Indication: IMMUNOSUPPRESSANT DRUG THERAPY
     Dosage: 2 MG, UNK
     Dates: start: 20101018, end: 20101025
  8. PREDNISONE [Concomitant]
     Dosage: 10 MG, UNK
     Dates: start: 20101105

REACTIONS (1)
  - BILIARY NEOPLASM [None]
